FAERS Safety Report 9940714 (Version 1)
Quarter: 2014Q1

REPORT INFORMATION
  Report Type: Spontaneous
  Country: HK (occurrence: HK)
  Receive Date: 20140303
  Receipt Date: 20140303
  Transmission Date: 20141002
  Serious: Yes (Other)
  Sender: FDA-Public Use
  Company Number: HK-ACTAVIS-2014-03136

PATIENT
  Age: 30 Year
  Sex: Female

DRUGS (6)
  1. NIFEDIPINE (UNKNOWN) [Suspect]
     Indication: PREMATURE LABOUR
     Dosage: 20 MG, Q8H, SLOW-RELEASE
     Route: 048
  2. NIFEDIPINE (UNKNOWN) [Interacting]
     Indication: OFF LABEL USE
     Dosage: 10 MG, EVERY 15 MINUTES, 4 DOSES
     Route: 060
  3. ATOSIBAN [Interacting]
     Indication: PREMATURE LABOUR
     Dosage: 6 MG/H
     Route: 042
  4. ATOSIBAN [Interacting]
     Dosage: 18 MG/H
     Route: 042
  5. ATOSIBAN [Interacting]
     Dosage: 6.75 MG, SINGLE
     Route: 042
  6. DEXAMETHASONE [Concomitant]
     Indication: MATERNAL THERAPY TO ENHANCE FOETAL LUNG MATURITY
     Dosage: 9 MG, Q6H, 4 DOSES
     Route: 030

REACTIONS (4)
  - Atrial fibrillation [Recovered/Resolved]
  - Potentiating drug interaction [Unknown]
  - Off label use [Unknown]
  - Maternal exposure during pregnancy [Recovered/Resolved]
